FAERS Safety Report 22858127 (Version 4)
Quarter: 2023Q4

REPORT INFORMATION
  Report Type: Report from Study
  Country: CH (occurrence: CH)
  Receive Date: 20230824
  Receipt Date: 20231002
  Transmission Date: 20240109
  Serious: Yes (Hospitalization)
  Sender: FDA-Public Use
  Company Number: CH-ABBVIE-5378821

PATIENT
  Sex: Male

DRUGS (10)
  1. CARBIDOPA\LEVODOPA [Suspect]
     Active Substance: CARBIDOPA\LEVODOPA
     Indication: Parkinson^s disease
     Dosage: MD 6.0ML, CRD 4.1ML/H, ED 1.0ML, CRN 1.9ML, FREQUENCY TEXT: 24H THERAPY
     Route: 050
     Dates: start: 20230228, end: 20230303
  2. CARBIDOPA\LEVODOPA [Suspect]
     Active Substance: CARBIDOPA\LEVODOPA
     Dosage: MD 9.0ML, CRD 4.6ML/H, ED 1.0ML, CRN 2.7ML, FREQUENCY TEXT: 24H THERAPY
     Route: 050
     Dates: start: 20230621, end: 20230904
  3. CARBIDOPA\LEVODOPA [Suspect]
     Active Substance: CARBIDOPA\LEVODOPA
     Dosage: DISCONTINUED IN FEB 2023, FREQUENCY TEXT: 24H THERAPY
     Route: 050
     Dates: start: 20230223
  4. CARBIDOPA\LEVODOPA [Suspect]
     Active Substance: CARBIDOPA\LEVODOPA
     Dosage: MD 9.0ML, CRD 4.4ML/H, ED 1.0ML, CRN 2.4ML, FREQUENCY TEXT: 24H THERAPY
     Route: 050
     Dates: start: 20230404, end: 20230412
  5. CARBIDOPA\LEVODOPA [Suspect]
     Active Substance: CARBIDOPA\LEVODOPA
     Dosage: MD 9.0ML, CRD 4.5ML/H, ED 1.0ML, CRN 2.6ML, FREQUENCY TEXT: 24H THERAPY
     Route: 050
     Dates: start: 20230519, end: 20230621
  6. CARBIDOPA\LEVODOPA [Suspect]
     Active Substance: CARBIDOPA\LEVODOPA
     Dosage: MD 9.0ML, CRD 4.2ML/H, ED 1.0ML, CRN 2.2ML, FREQUENCY TEXT: 24H THERAPY
     Route: 050
     Dates: start: 20230306, end: 20230404
  7. CARBIDOPA\LEVODOPA [Suspect]
     Active Substance: CARBIDOPA\LEVODOPA
     Dosage: MD 6.0ML, CRD 3.5ML/H, ED 1.0ML, CRN 1.5ML, FREQUENCY TEXT: 24H THERAPY
     Route: 050
     Dates: start: 20230224, end: 20230228
  8. CARBIDOPA\LEVODOPA [Suspect]
     Active Substance: CARBIDOPA\LEVODOPA
     Dosage: MD 9.0ML, CRD 4.1ML/H, ED 1.0ML, CRN 1.9ML, FREQUENCY TEXT: 24H THERAPY
     Route: 050
     Dates: start: 20230303, end: 20230306
  9. CARBIDOPA\LEVODOPA [Suspect]
     Active Substance: CARBIDOPA\LEVODOPA
     Dosage: MD 9.0ML, CRD 4.4ML/H, ED 1.0ML, CRN 2.5ML, FREQUENCY TEXT: 24H THERAPY
     Route: 050
     Dates: start: 20230412, end: 20230519
  10. CARBIDOPA\LEVODOPA [Suspect]
     Active Substance: CARBIDOPA\LEVODOPA
     Dosage: MD 9.0ML, CRD 5.1ML/H, ED 1.0ML, CRN 2.7ML FREQUENCY TEXT: 24H THERAPY
     Route: 050
     Dates: start: 20230904

REACTIONS (5)
  - Fall [Unknown]
  - Craniofacial fracture [Not Recovered/Not Resolved]
  - Device use issue [Not Recovered/Not Resolved]
  - Drug ineffective [Not Recovered/Not Resolved]
  - Freezing phenomenon [Not Recovered/Not Resolved]

NARRATIVE: CASE EVENT DATE: 20230101
